FAERS Safety Report 10037005 (Version 1)
Quarter: 2014Q1

REPORT INFORMATION
  Report Type: Spontaneous
  Country: US (occurrence: US)
  Receive Date: 20140326
  Receipt Date: 20140326
  Transmission Date: 20141002
  Serious: No
  Sender: FDA-Public Use
  Company Number: US-BIOGENIDEC-2014BI026304

PATIENT
  Age: 60 Year
  Sex: Female

DRUGS (11)
  1. TECFIDERA [Suspect]
     Indication: MULTIPLE SCLEROSIS
     Route: 048
  2. BACLOFEN [Concomitant]
  3. CARISOPRODOL [Concomitant]
  4. CITALOPRAM HYDROBROMIDE [Concomitant]
  5. DIAZEPAM [Concomitant]
  6. GABAPENTIN [Concomitant]
  7. LEVETIRACETAM ER [Concomitant]
  8. OMEPRAZOLE [Concomitant]
  9. SIMVASTATIN [Concomitant]
  10. SOLU-MEDROL [Concomitant]
  11. TRAMADOL HCL [Concomitant]

REACTIONS (4)
  - Vision blurred [Not Recovered/Not Resolved]
  - Dysarthria [Not Recovered/Not Resolved]
  - Fatigue [Not Recovered/Not Resolved]
  - Balance disorder [Not Recovered/Not Resolved]
